FAERS Safety Report 19173824 (Version 3)
Quarter: 2021Q2

REPORT INFORMATION
  Report Type: Spontaneous
  Country: CA (occurrence: CA)
  Receive Date: 20210423
  Receipt Date: 20210521
  Transmission Date: 20210717
  Serious: Yes (Death)
  Sender: FDA-Public Use
  Company Number: CA-EXELIXIS-CABO-21039598

PATIENT
  Age: 71 Year
  Sex: Male

DRUGS (10)
  1. CABOMETYX [Suspect]
     Active Substance: CABOZANTINIB S-MALATE
     Dosage: 30 MG, QD
     Dates: start: 20210222, end: 20210228
  2. METOPROLOL. [Concomitant]
     Active Substance: METOPROLOL
  3. ROSUVASTATIN. [Concomitant]
     Active Substance: ROSUVASTATIN
  4. HYDROCHLOROTHIAZIDE. [Concomitant]
     Active Substance: HYDROCHLOROTHIAZIDE
  5. CABOMETYX [Suspect]
     Active Substance: CABOZANTINIB S-MALATE
     Indication: PRODUCT USED FOR UNKNOWN INDICATION
     Dosage: 60 MG, QD
     Dates: start: 20210120, end: 20210221
  6. COVERSYL [Concomitant]
     Active Substance: PERINDOPRIL
  7. RABEPRAZOLE [Concomitant]
     Active Substance: RABEPRAZOLE
  8. ELTROXIN [Concomitant]
     Active Substance: LEVOTHYROXINE
  9. METFORMIN [Concomitant]
     Active Substance: METFORMIN HYDROCHLORIDE
  10. AMLODIPINE [Concomitant]
     Active Substance: AMLODIPINE BESYLATE

REACTIONS (2)
  - Wrong technique in product usage process [Unknown]
  - Haemorrhagic stroke [Fatal]

NARRATIVE: CASE EVENT DATE: 20210222
